FAERS Safety Report 24009119 (Version 1)
Quarter: 2024Q2

REPORT INFORMATION
  Report Type: Spontaneous
  Country: US (occurrence: None)
  Receive Date: 20240625
  Receipt Date: 20240625
  Transmission Date: 20240716
  Serious: No
  Sender: FDA-Public Use
  Company Number: 2024A144630

PATIENT
  Sex: Female

DRUGS (1)
  1. AIRSUPRA [Suspect]
     Active Substance: ALBUTEROL SULFATE\BUDESONIDE
     Dosage: UNKNOWN UNKNOWN
     Route: 055

REACTIONS (4)
  - Dyspnoea [Unknown]
  - Product dose omission issue [Unknown]
  - Device use issue [Unknown]
  - Device delivery system issue [Unknown]
